FAERS Safety Report 4829873-5 (Version None)
Quarter: 2005Q4

REPORT INFORMATION
  Report Type: 
  Country: None (occurrence: None)
  Receive Date: 20051117
  Receipt Date: 20051110
  Transmission Date: 20060501
  Serious: Yes (Death, Congenital Anomaly)
  Sender: FDA-Public Use
  Company Number: GB-ABBOTT-05P-167-0317179-00

PATIENT
  Sex: Male

DRUGS (2)
  1. EPILIM TABLETS [Suspect]
     Indication: DRUG EXPOSURE DURING PREGNANCY
  2. EPILIM TABLETS [Suspect]
     Indication: EPILEPSY
     Dates: end: 20030101

REACTIONS (16)
  - ABNORMAL BEHAVIOUR [None]
  - AGGRESSION [None]
  - CARDIAC ARREST [None]
  - CARDIAC MURMUR [None]
  - COGNITIVE DISORDER [None]
  - DEVELOPMENTAL DELAY [None]
  - EAR INFECTION [None]
  - ENURESIS [None]
  - EPILEPSY [None]
  - FOETAL VALPROATE SYNDROME [None]
  - HEARING IMPAIRED [None]
  - IMPULSIVE BEHAVIOUR [None]
  - LEARNING DISORDER [None]
  - NEURODEVELOPMENTAL DISORDER [None]
  - PERSONALITY DISORDER [None]
  - SPEECH DISORDER DEVELOPMENTAL [None]
